FAERS Safety Report 14763755 (Version 4)
Quarter: 2018Q2

REPORT INFORMATION
  Report Type: Spontaneous
  Country: BR (occurrence: BR)
  Receive Date: 20180416
  Receipt Date: 20180531
  Transmission Date: 20180711
  Serious: Yes (Death)
  Sender: FDA-Public Use
  Company Number: BR-AUROBINDO-AUR-APL-2018-020142

PATIENT
  Age: 63 Year
  Sex: Female
  Weight: 49.2 kg

DRUGS (12)
  1. LACTULOSE. [Concomitant]
     Active Substance: LACTULOSE
     Dosage: 10 MILLILITER
  2. PIPERACILLIN AND TAZOBACTAM [Suspect]
     Active Substance: PIPERACILLIN SODIUM\TAZOBACTAM SODIUM
     Indication: INTESTINAL HAEMORRHAGE
     Dosage: 4.5 GRAM 8/8 H
     Route: 065
     Dates: start: 20180316, end: 20180319
  3. PIPERACILLIN AND TAZOBACTAM [Suspect]
     Active Substance: PIPERACILLIN SODIUM\TAZOBACTAM SODIUM
     Indication: HAEMODYNAMIC INSTABILITY
  4. DIPIRONA [Concomitant]
     Active Substance: METAMIZOLE
  5. ALBUMINA HUMANA [Concomitant]
     Active Substance: ALBUMIN HUMAN
  6. PROPRANOLOL [Concomitant]
     Active Substance: PROPRANOLOL HYDROCHLORIDE
     Dosage: 20 MILLIGRAM
  7. BROMOPRIDA [Concomitant]
     Dosage: 10 MILLIGRAM
  8. ACETILCISTEINA [Concomitant]
     Active Substance: ACETYLCYSTEINE
  9. INSULINA                           /00030501/ [Suspect]
     Active Substance: INSULIN NOS
     Indication: PRODUCT USED FOR UNKNOWN INDICATION
  10. OMEPRAZOL                          /00661201/ [Concomitant]
     Active Substance: OMEPRAZOLE
  11. FUROSEMIDA                         /00032601/ [Concomitant]
     Active Substance: FUROSEMIDE
  12. ONDANSETRON [Concomitant]
     Active Substance: ONDANSETRON

REACTIONS (3)
  - Death [Fatal]
  - Chills [Unknown]
  - Tremor [Unknown]

NARRATIVE: CASE EVENT DATE: 20180316
